FAERS Safety Report 17345765 (Version 7)
Quarter: 2022Q4

REPORT INFORMATION
  Report Type: Report from Study
  Country: UA (occurrence: UA)
  Receive Date: 20200129
  Receipt Date: 20221221
  Transmission Date: 20230113
  Serious: Yes (Hospitalization, Other)
  Sender: FDA-Public Use
  Company Number: UA-BAYER-2020-012156

PATIENT
  Sex: Male
  Weight: 77 kg

DRUGS (55)
  1. COPANLISIB [Suspect]
     Active Substance: COPANLISIB
     Indication: Non-Hodgkin^s lymphoma recurrent
     Dosage: 60 MG
     Route: 042
     Dates: start: 20191004, end: 20191004
  2. COPANLISIB [Suspect]
     Active Substance: COPANLISIB
     Indication: Non-Hodgkin^s lymphoma recurrent
     Dosage: 60 MG
     Dates: start: 20191011, end: 20191011
  3. COPANLISIB [Suspect]
     Active Substance: COPANLISIB
     Indication: Non-Hodgkin^s lymphoma recurrent
     Dosage: 60 MG
     Route: 042
     Dates: start: 20191018, end: 20191018
  4. COPANLISIB [Suspect]
     Active Substance: COPANLISIB
     Indication: Non-Hodgkin^s lymphoma recurrent
     Dosage: 60 MG
     Route: 042
     Dates: start: 20191101, end: 20191101
  5. COPANLISIB [Suspect]
     Active Substance: COPANLISIB
     Indication: Non-Hodgkin^s lymphoma recurrent
     Dosage: 60 MG
     Route: 042
     Dates: start: 20191108, end: 20191108
  6. COPANLISIB [Suspect]
     Active Substance: COPANLISIB
     Indication: Non-Hodgkin^s lymphoma recurrent
     Dosage: 60 MG
     Route: 042
     Dates: start: 20191115, end: 20191115
  7. COPANLISIB [Suspect]
     Active Substance: COPANLISIB
     Indication: Non-Hodgkin^s lymphoma recurrent
     Dosage: 60 MG
     Route: 042
     Dates: start: 20191128, end: 20191128
  8. COPANLISIB [Suspect]
     Active Substance: COPANLISIB
     Indication: Non-Hodgkin^s lymphoma recurrent
     Dosage: 60 MG
     Route: 042
     Dates: start: 20191205, end: 20191205
  9. COPANLISIB [Suspect]
     Active Substance: COPANLISIB
     Indication: Non-Hodgkin^s lymphoma recurrent
     Dosage: 60 MG
     Route: 042
     Dates: start: 20191212, end: 20191212
  10. COPANLISIB [Suspect]
     Active Substance: COPANLISIB
     Indication: Non-Hodgkin^s lymphoma recurrent
     Dosage: 60 MG
     Route: 042
     Dates: start: 20191227, end: 20191227
  11. COPANLISIB [Suspect]
     Active Substance: COPANLISIB
     Indication: Non-Hodgkin^s lymphoma recurrent
     Dosage: 45 MG
     Route: 042
     Dates: start: 20200103, end: 20200103
  12. COPANLISIB [Suspect]
     Active Substance: COPANLISIB
     Indication: Non-Hodgkin^s lymphoma recurrent
     Dosage: 45 MG
     Route: 042
     Dates: start: 20200211, end: 20200211
  13. COPANLISIB [Suspect]
     Active Substance: COPANLISIB
     Indication: Non-Hodgkin^s lymphoma recurrent
     Dosage: 45 MG
     Route: 042
     Dates: start: 20200218, end: 20200218
  14. COPANLISIB [Suspect]
     Active Substance: COPANLISIB
     Indication: Non-Hodgkin^s lymphoma recurrent
     Dosage: 45 MG
     Route: 042
     Dates: start: 20200225, end: 20200225
  15. COPANLISIB [Suspect]
     Active Substance: COPANLISIB
     Indication: Non-Hodgkin^s lymphoma recurrent
     Dosage: 45 MG
     Route: 042
     Dates: start: 20200312, end: 20200312
  16. COPANLISIB [Suspect]
     Active Substance: COPANLISIB
     Indication: Non-Hodgkin^s lymphoma recurrent
     Dosage: 45 MG
     Route: 042
     Dates: start: 20200408, end: 20200408
  17. COPANLISIB [Suspect]
     Active Substance: COPANLISIB
     Indication: Non-Hodgkin^s lymphoma recurrent
     Dosage: 45 MG
     Route: 042
     Dates: start: 20200416, end: 20200416
  18. COPANLISIB [Suspect]
     Active Substance: COPANLISIB
     Indication: Non-Hodgkin^s lymphoma recurrent
     Dosage: 45 MG
     Route: 042
     Dates: start: 20200423, end: 20200423
  19. COPANLISIB [Suspect]
     Active Substance: COPANLISIB
     Indication: Non-Hodgkin^s lymphoma recurrent
     Dosage: 45 MG
     Route: 042
     Dates: start: 20200506, end: 20200506
  20. COPANLISIB [Suspect]
     Active Substance: COPANLISIB
     Indication: Non-Hodgkin^s lymphoma recurrent
     Dosage: 45 MG
     Route: 042
     Dates: start: 20200513, end: 20200513
  21. COPANLISIB [Suspect]
     Active Substance: COPANLISIB
     Indication: Non-Hodgkin^s lymphoma recurrent
     Dosage: 45 MG
     Route: 042
     Dates: start: 20200520, end: 20200520
  22. COPANLISIB [Suspect]
     Active Substance: COPANLISIB
     Indication: Non-Hodgkin^s lymphoma recurrent
     Dosage: 45 MG
     Route: 042
     Dates: start: 20200603, end: 20200603
  23. COPANLISIB [Suspect]
     Active Substance: COPANLISIB
     Indication: Non-Hodgkin^s lymphoma recurrent
     Dosage: 45 MG
     Route: 042
     Dates: start: 20200610, end: 20200610
  24. COPANLISIB [Suspect]
     Active Substance: COPANLISIB
     Indication: Non-Hodgkin^s lymphoma recurrent
     Dosage: 45 MG
     Route: 042
     Dates: start: 20200617, end: 20200617
  25. COPANLISIB [Suspect]
     Active Substance: COPANLISIB
     Indication: Non-Hodgkin^s lymphoma recurrent
     Dosage: 45 MG
     Route: 042
     Dates: start: 20200715, end: 20200715
  26. COPANLISIB [Suspect]
     Active Substance: COPANLISIB
     Indication: Non-Hodgkin^s lymphoma recurrent
     Dosage: 45 MG
     Route: 042
     Dates: start: 20200722, end: 20200722
  27. COPANLISIB [Suspect]
     Active Substance: COPANLISIB
     Indication: Non-Hodgkin^s lymphoma recurrent
     Dosage: 45 MG
     Route: 042
     Dates: start: 20200812, end: 20200812
  28. COPANLISIB [Suspect]
     Active Substance: COPANLISIB
     Indication: Non-Hodgkin^s lymphoma recurrent
     Dosage: 45 MG
     Route: 042
     Dates: start: 20200819, end: 20200819
  29. COPANLISIB [Suspect]
     Active Substance: COPANLISIB
     Indication: Non-Hodgkin^s lymphoma recurrent
     Dosage: 45 MG
     Route: 042
     Dates: start: 20200909, end: 20200909
  30. COPANLISIB [Suspect]
     Active Substance: COPANLISIB
     Indication: Non-Hodgkin^s lymphoma recurrent
     Dosage: 45 MG
     Route: 042
     Dates: start: 20200916, end: 20200916
  31. COPANLISIB [Suspect]
     Active Substance: COPANLISIB
     Indication: Non-Hodgkin^s lymphoma recurrent
     Dosage: 45 MG
     Route: 042
     Dates: start: 20200923, end: 20200923
  32. RITUXIMAB [Suspect]
     Active Substance: RITUXIMAB
     Indication: Non-Hodgkin^s lymphoma recurrent
     Dosage: 375 MG/M2
     Route: 042
     Dates: start: 20191004, end: 20191004
  33. RITUXIMAB [Suspect]
     Active Substance: RITUXIMAB
     Indication: Non-Hodgkin^s lymphoma recurrent
     Dosage: 375 MG/M2
     Route: 042
     Dates: start: 20191101, end: 20191101
  34. RITUXIMAB [Suspect]
     Active Substance: RITUXIMAB
     Indication: Non-Hodgkin^s lymphoma recurrent
     Dosage: 375 MG/M2
     Route: 042
     Dates: start: 20191128, end: 20191128
  35. RITUXIMAB [Suspect]
     Active Substance: RITUXIMAB
     Indication: Non-Hodgkin^s lymphoma recurrent
     Dosage: 375 MG/M2
     Route: 042
     Dates: start: 20191227, end: 20191227
  36. RITUXIMAB [Suspect]
     Active Substance: RITUXIMAB
     Indication: Non-Hodgkin^s lymphoma recurrent
     Dosage: 375 MG/M2
     Route: 042
     Dates: start: 20200211, end: 20200211
  37. RITUXIMAB [Suspect]
     Active Substance: RITUXIMAB
     Indication: Non-Hodgkin^s lymphoma recurrent
     Dosage: 375 MG/M2
     Route: 042
     Dates: start: 20200312, end: 20200312
  38. BENDAMUSTINE [Suspect]
     Active Substance: BENDAMUSTINE
     Indication: Non-Hodgkin^s lymphoma recurrent
     Dosage: 90 MG/M2
     Route: 042
     Dates: start: 20191004, end: 20191004
  39. BENDAMUSTINE [Suspect]
     Active Substance: BENDAMUSTINE
     Indication: Non-Hodgkin^s lymphoma recurrent
     Dosage: 90 MG/M2
     Route: 042
     Dates: start: 20191005, end: 20191005
  40. BENDAMUSTINE [Suspect]
     Active Substance: BENDAMUSTINE
     Indication: Non-Hodgkin^s lymphoma recurrent
     Dosage: 90 MG/M2
     Route: 042
     Dates: start: 20191101, end: 20191101
  41. BENDAMUSTINE [Suspect]
     Active Substance: BENDAMUSTINE
     Indication: Non-Hodgkin^s lymphoma recurrent
     Dosage: 90 MG/M2
     Route: 042
     Dates: start: 20191102, end: 20191102
  42. BENDAMUSTINE [Suspect]
     Active Substance: BENDAMUSTINE
     Indication: Non-Hodgkin^s lymphoma recurrent
     Dosage: 90 MG/M2
     Route: 042
     Dates: start: 20191128, end: 20191128
  43. BENDAMUSTINE [Suspect]
     Active Substance: BENDAMUSTINE
     Indication: Non-Hodgkin^s lymphoma recurrent
     Dosage: 90 MG/M2
     Route: 042
     Dates: start: 20191129, end: 20191129
  44. BENDAMUSTINE [Suspect]
     Active Substance: BENDAMUSTINE
     Indication: Non-Hodgkin^s lymphoma recurrent
     Dosage: 90 MG/M2
     Route: 042
     Dates: start: 20191227, end: 20191227
  45. BENDAMUSTINE [Suspect]
     Active Substance: BENDAMUSTINE
     Indication: Non-Hodgkin^s lymphoma recurrent
     Dosage: 90 MG/M2
     Route: 042
     Dates: start: 20191228, end: 20191228
  46. BENDAMUSTINE [Suspect]
     Active Substance: BENDAMUSTINE
     Indication: Non-Hodgkin^s lymphoma recurrent
     Dosage: 175 MG/M2
     Route: 042
     Dates: start: 20200211, end: 20200211
  47. BENDAMUSTINE [Suspect]
     Active Substance: BENDAMUSTINE
     Indication: Non-Hodgkin^s lymphoma recurrent
     Dosage: 175 MG/M2
     Route: 042
     Dates: start: 20200212, end: 20200212
  48. BENDAMUSTINE [Suspect]
     Active Substance: BENDAMUSTINE
     Indication: Non-Hodgkin^s lymphoma recurrent
     Dosage: 174 MG/M2
     Route: 042
     Dates: start: 20200312, end: 20200312
  49. BENDAMUSTINE [Suspect]
     Active Substance: BENDAMUSTINE
     Indication: Non-Hodgkin^s lymphoma recurrent
     Dosage: 174 MG/M2
     Route: 042
     Dates: start: 20200313, end: 20200313
  50. PERINDOPRIL ARGININE [Concomitant]
     Active Substance: PERINDOPRIL ARGININE
     Indication: Hypertension
     Dosage: 5 MG, QD
     Route: 048
     Dates: start: 20190918
  51. BISOPROLOL [Concomitant]
     Active Substance: BISOPROLOL
     Indication: Hypertension
     Dosage: 5 MG, QD
     Route: 048
     Dates: start: 20190918
  52. INDAPAMIDE [Concomitant]
     Active Substance: INDAPAMIDE
     Indication: Hypertension
     Dosage: 1.5 MG, QD
     Route: 048
     Dates: start: 20190918
  53. ALLOPURINOL [Concomitant]
     Active Substance: ALLOPURINOL
     Indication: Neoplasm prophylaxis
     Dosage: 300 MG, QD
     Route: 048
     Dates: start: 20191004
  54. OMEPRAZOLE [Concomitant]
     Active Substance: OMEPRAZOLE
     Indication: Gastritis erosive
     Dosage: 20 MG, BID
     Route: 048
     Dates: start: 20191004
  55. METFORMIN [Concomitant]
     Active Substance: METFORMIN HYDROCHLORIDE
     Indication: Hyperglycaemia
     Dosage: 500 MG, BID
     Dates: start: 20200102

REACTIONS (2)
  - Cytomegalovirus infection [Recovered/Resolved]
  - Cytomegalovirus infection [Recovered/Resolved]

NARRATIVE: CASE EVENT DATE: 20200120
